FAERS Safety Report 4699666-0 (Version None)
Quarter: 2005Q2

REPORT INFORMATION
  Report Type: 
  Country: None (occurrence: None)
  Receive Date: 20050624
  Receipt Date: 20050610
  Transmission Date: 20051028
  Serious: Yes (Other)
  Sender: FDA-Public Use
  Company Number: GB-JNJFOC-20050603273

PATIENT
  Sex: Male

DRUGS (4)
  1. DAKTACORT [Suspect]
     Indication: FUNGAL INFECTION
  2. NIZORAL [Suspect]
     Indication: FUNGAL INFECTION
  3. TEGRETOL [Concomitant]
     Indication: EPILEPSY
  4. KEPPRA [Concomitant]
     Indication: EPILEPSY

REACTIONS (2)
  - CONVULSION [None]
  - GRAND MAL CONVULSION [None]
